FAERS Safety Report 4302767-X (Version None)
Quarter: 2004Q1

REPORT INFORMATION
  Report Type: 
  Country: None (occurrence: None)
  Receive Date: 20040224
  Receipt Date: 20030923
  Transmission Date: 20041129
  Serious: No
  Sender: FDA-Public Use
  Company Number: US-BRISTOL-MYERS SQUIBB COMPANY-12392684

PATIENT
  Age: 30 Year
  Sex: Male
  Weight: 131 kg

DRUGS (1)
  1. KENALOG-10 [Suspect]
     Indication: ALOPECIA AREATA
     Route: 051

REACTIONS (2)
  - PRURITUS [None]
  - URTICARIA [None]
